FAERS Safety Report 13508417 (Version 3)
Quarter: 2017Q2

REPORT INFORMATION
  Report Type: Spontaneous
  Country: US (occurrence: US)
  Receive Date: 20170503
  Receipt Date: 20170626
  Transmission Date: 20170830
  Serious: Yes (Hospitalization, Other)
  Sender: FDA-Public Use
  Company Number: US-AUROBINDO-AUR-APL-2017-33330

PATIENT
  Age: 59 Year
  Sex: Male

DRUGS (12)
  1. VANCOMYCIN [Suspect]
     Active Substance: VANCOMYCIN
     Indication: OSTEOMYELITIS
     Dosage: 22.5 MG/KG, ON HD01; 1 G (11.3 MG/KG) QL2H
     Route: 065
  2. VANCOMYCIN [Suspect]
     Active Substance: VANCOMYCIN
     Dosage: 22.5 MG/KG, ON HD04
     Route: 065
  3. VANCOMYCIN [Suspect]
     Active Substance: VANCOMYCIN
     Dosage: 11.3 MG/KG, ON HD8
     Route: 065
  4. VANCOMYCIN [Suspect]
     Active Substance: VANCOMYCIN
     Dosage: ON HD8
  5. PIPERACILLIN AND TAZOBACTAM [Suspect]
     Active Substance: PIPERACILLIN SODIUM\TAZOBACTAM SODIUM
     Indication: OSTEOMYELITIS
     Dosage: UNK
     Route: 065
  6. VANCOMYCIN [Suspect]
     Active Substance: VANCOMYCIN
     Dosage: 33.8 MG/KG, ON HD05 TO 7
     Route: 065
  7. VANCOMYCIN [Suspect]
     Active Substance: VANCOMYCIN
     Dosage: ON HD01; 1 G (11.3 MG/KG) QL2H
  8. VANCOMYCIN [Suspect]
     Active Substance: VANCOMYCIN
     Dosage: 33.8 MG/KG, ON HD03
     Route: 065
  9. VANCOMYCIN [Suspect]
     Active Substance: VANCOMYCIN
     Dosage: ON HD03
  10. VANCOMYCIN [Suspect]
     Active Substance: VANCOMYCIN
     Dosage: ON HD04
  11. VANCOMYCIN [Suspect]
     Active Substance: VANCOMYCIN
     Dosage: ON HD05 TO 7
  12. CIPROFLOXACIN. [Concomitant]
     Active Substance: CIPROFLOXACIN
     Indication: OSTEOMYELITIS
     Dosage: UNK
     Route: 048

REACTIONS (5)
  - Anuria [Recovered/Resolved]
  - Renal tubular necrosis [Recovered/Resolved]
  - Hypotension [Recovered/Resolved]
  - Nephropathy toxic [Recovered/Resolved]
  - Acute kidney injury [Recovered/Resolved]
